FAERS Safety Report 6998633-1 (Version None)
Quarter: 2010Q3

REPORT INFORMATION
  Report Type: 
  Country: None (occurrence: None)
  Receive Date: 20100920
  Receipt Date: 20070702
  Transmission Date: 20110219
  Serious: Yes (Disabling)
  Sender: FDA-Public Use
  Company Number: US-ASTRAZENECA-2006UW21737

PATIENT
  Age: 15238 Day
  Sex: Female

DRUGS (13)
  1. SEROQUEL [Suspect]
     Indication: SCHIZOPHRENIA
     Dosage: 25-800 MG
     Route: 048
     Dates: start: 20030604, end: 20051006
  2. SEROQUEL [Suspect]
     Indication: DEPRESSION
     Dosage: 25-800 MG
     Route: 048
     Dates: start: 20030604, end: 20051006
  3. SEROQUEL [Suspect]
     Route: 048
     Dates: start: 20051110
  4. SEROQUEL [Suspect]
     Route: 048
     Dates: start: 20051110
  5. CYMBALTA [Concomitant]
  6. DEPAKOTE [Concomitant]
     Route: 048
     Dates: start: 20030604, end: 20030618
  7. ARTANE [Concomitant]
     Dosage: 2-4 MG
     Route: 048
     Dates: start: 20030604, end: 20030618
  8. AMBIEN [Concomitant]
     Route: 048
     Dates: start: 20030604, end: 20030618
  9. NEXIUM [Concomitant]
     Route: 048
     Dates: start: 20040414
  10. ASPIRIN [Concomitant]
     Dosage: DAILY
     Dates: start: 20040414
  11. PAXIL CR [Concomitant]
     Dates: start: 20040902
  12. ZELNORM [Concomitant]
     Route: 048
     Dates: start: 20040630
  13. LITHOBID [Concomitant]
     Route: 048
     Dates: start: 20030604, end: 20030618

REACTIONS (7)
  - DIABETES MELLITUS [None]
  - GLUCOSE TOLERANCE IMPAIRED [None]
  - HYPERGLYCAEMIA [None]
  - HYPOGLYCAEMIA [None]
  - NEUROLEPTIC MALIGNANT SYNDROME [None]
  - PANCREATITIS [None]
  - TARDIVE DYSKINESIA [None]
